FAERS Safety Report 11628761 (Version 1)
Quarter: 2015Q4

REPORT INFORMATION
  Report Type: Spontaneous
  Country: US (occurrence: US)
  Receive Date: 20151014
  Receipt Date: 20151014
  Transmission Date: 20160304
  Serious: No
  Sender: FDA-Public Use
  Company Number: US-BAYER-2015-439209

PATIENT
  Age: 61 Year
  Sex: Female
  Weight: 80.73 kg

DRUGS (1)
  1. ALEVE [Suspect]
     Active Substance: NAPROXEN SODIUM
     Indication: ARTHRITIS
     Dosage: 2 DF, QD

REACTIONS (2)
  - Nausea [None]
  - Product use issue [None]

NARRATIVE: CASE EVENT DATE: 20151001
